FAERS Safety Report 15849068 (Version 1)
Quarter: 2019Q1

REPORT INFORMATION
  Report Type: Other
  Country: FR (occurrence: FR)
  Receive Date: 20190121
  Receipt Date: 20190121
  Transmission Date: 20190417
  Serious: Yes (Hospitalization)
  Sender: FDA-Public Use
  Company Number: FR-EMCURE PHARMS-2018HTG00381

PATIENT
  Age: 62 Year
  Sex: Male
  Weight: 85 kg

DRUGS (5)
  1. ETOPOSIDE (TEVA) [Suspect]
     Active Substance: ETOPOSIDE
     Indication: NON-HODGKIN^S LYMPHOMA
     Dosage: 290 MG, 1X/DAY
     Route: 042
     Dates: start: 20160105, end: 20160108
  2. BICNU [Suspect]
     Active Substance: CARMUSTINE
     Indication: NON-HODGKIN^S LYMPHOMA
     Dosage: 581 MG, 1X/DAY
     Route: 042
     Dates: start: 20160104, end: 20160104
  3. CYTARABINE (EG) [Suspect]
     Active Substance: CYTARABINE
     Indication: NON-HODGKIN^S LYMPHOMA
     Dosage: 770 MG, 1X/DAY
     Route: 042
     Dates: start: 20160105, end: 20160108
  4. ALKERAN [Suspect]
     Active Substance: MELPHALAN
     Indication: NON-HODGKIN^S LYMPHOMA
     Dosage: 270 MG, 1X/DAY
     Route: 042
     Dates: start: 20160109, end: 20160109
  5. METHYLPREDNISOLONE (MYLAN) [Concomitant]
     Dosage: 1 DF, 1X/DAY
     Route: 042
     Dates: start: 20160104

REACTIONS (5)
  - Escherichia infection [Recovered/Resolved]
  - Rash [Recovered/Resolved]
  - Cholestasis [Recovered/Resolved]
  - Mucosal inflammation [Recovered/Resolved]
  - Aplasia [Recovered/Resolved]

NARRATIVE: CASE EVENT DATE: 20160106
